FAERS Safety Report 8586366-X (Version None)
Quarter: 2012Q3

REPORT INFORMATION
  Report Type: 
  Country: None (occurrence: None)
  Receive Date: 20120810
  Receipt Date: 20120809
  Transmission Date: 20120928
  Serious: Yes (Hospitalization)
  Sender: FDA-Public Use
  Company Number: US-ROCHE-1099575

PATIENT
  Sex: Female

DRUGS (2)
  1. BONIVA [Suspect]
     Indication: OSTEOPOROSIS
     Route: 065
  2. FOSAMAX [Suspect]
     Indication: OSTEOPOROSIS
     Route: 065

REACTIONS (1)
  - FEMUR FRACTURE [None]
